FAERS Safety Report 8772986 (Version 2)
Quarter: 2012Q4

REPORT INFORMATION
  Report Type: 
  Country: US (occurrence: US)
  Receive Date: 20120907
  Receipt Date: 20121024
  Transmission Date: 20130627
  Serious: Yes (Other)
  Sender: FDA-Public Use
  Company Number: US-PFIZER INC-2012220366

PATIENT
  Age: 48 Year
  Sex: Female
  Weight: 78 kg

DRUGS (5)
  1. CHANTIX [Suspect]
     Indication: SMOKING CESSATION THERAPY
     Dosage: 0.5 mg, 1x/day
     Route: 048
  2. HYDROCODONE [Concomitant]
     Indication: PAIN
     Dosage: UNK
  3. SIMVASTATIN [Concomitant]
     Dosage: UNK
  4. IBUPROFEN [Concomitant]
     Dosage: UNK
  5. LYRICA [Concomitant]
     Dosage: UNK

REACTIONS (3)
  - Non-alcoholic steatohepatitis [Not Recovered/Not Resolved]
  - Emphysema [Not Recovered/Not Resolved]
  - Lung disorder [Not Recovered/Not Resolved]
